FAERS Safety Report 24246161 (Version 1)
Quarter: 2024Q3

REPORT INFORMATION
  Report Type: Spontaneous
  Country: GB (occurrence: GB)
  Receive Date: 20240824
  Receipt Date: 20240824
  Transmission Date: 20241017
  Serious: Yes (Hospitalization)
  Sender: TEVA
  Company Number: GB-ORESUND-24OPAJY0069P

PATIENT
  Age: 10 Month
  Sex: Male

DRUGS (4)
  1. CARBOPLATIN [Suspect]
     Active Substance: CARBOPLATIN
     Route: 065
  2. METHOTREXATE [Suspect]
     Active Substance: METHOTREXATE
     Route: 065
  3. THIOTEPA [Suspect]
     Active Substance: THIOTEPA
     Route: 065
  4. TOPOTECAN [Suspect]
     Active Substance: TOPOTECAN HYDROCHLORIDE
     Route: 037

REACTIONS (4)
  - Neurological decompensation [Recovered/Resolved]
  - Coma [Recovered/Resolved]
  - Intensive care [Recovered/Resolved]
  - Hypotonia [Recovered/Resolved]
